FAERS Safety Report 7693670-6 (Version None)
Quarter: 2011Q3

REPORT INFORMATION
  Report Type: 
  Country: None (occurrence: None)
  Receive Date: 20110819
  Receipt Date: 20110810
  Transmission Date: 20111222
  Serious: Yes (Death, Other)
  Sender: FDA-Public Use
  Company Number: CN-ROCHE-795972

PATIENT

DRUGS (10)
  1. SOMATOSTATIN [Concomitant]
     Indication: RENAL AND PANCREAS TRANSPLANT
     Route: 058
  2. METHYLPREDNISOLONE [Concomitant]
     Dosage: THE FOURTH AND FIFTH DAY AFTER PANCREAS-KIDNEY TRANSPLANTATION.
  3. METHYLPREDNISOLONE [Concomitant]
     Dosage: 40 MG ON 6TH DAY, THEN DOSAGE WAS DECREASED ON ALTERNATE DAYS, UNTIL IT DECREASED TO 20 MG A DAY.
  4. INSULIN [Concomitant]
     Indication: DIABETES MELLITUS
  5. TACROLIMUS [Concomitant]
     Indication: RENAL AND PANCREAS TRANSPLANT
     Dosage: STARTED WHEN BLOOD CREATININE DECREASED TO 270 UMOL/L.
  6. METRONIDAZOLE [Concomitant]
     Indication: INFECTION PROPHYLAXIS
  7. MYCOPHENOLATE MOFETIL [Suspect]
     Indication: RENAL AND PANCREAS TRANSPLANT
     Dosage: STARTED ONE DAY AFTER PANCREAS-KIDNEY TRANSPLANTATION.
     Route: 065
  8. DACLIZUMAB [Suspect]
     Indication: RENAL AND PANCREAS TRANSPLANT
     Route: 065
  9. ASPIRIN [Concomitant]
     Dosage: STARTED FROM ONE WEEK AFTER PANCREAS-KIDNEY TRANSPLANTATION.
  10. METHYLPREDNISOLONE [Concomitant]
     Indication: RENAL AND PANCREAS TRANSPLANT
     Dosage: THE FIRST THREE DAYS AFTER PANCREAS-KIDNEY TRANSPLANTATION.

REACTIONS (6)
  - MULTI-ORGAN FAILURE [None]
  - ABDOMINAL PAIN [None]
  - ABDOMINAL INFECTION [None]
  - LUNG INFECTION [None]
  - LOWER RESPIRATORY TRACT INFECTION BACTERIAL [None]
  - URINARY TRACT INFECTION [None]
